FAERS Safety Report 5342705-4 (Version None)
Quarter: 2007Q2

REPORT INFORMATION
  Report Type: 
  Country: None (occurrence: None)
  Receive Date: 20070601
  Receipt Date: 20070504
  Transmission Date: 20071010
  Serious: No
  Sender: FDA-Public Use
  Company Number: A0646218A

PATIENT
  Age: 3 Year
  Sex: Female
  Weight: 14.9 kg

DRUGS (6)
  1. AUGMENTIN '125' [Suspect]
     Indication: DRUG USE FOR UNKNOWN INDICATION
     Route: 065
     Dates: end: 20070201
  2. ACTIGALL [Suspect]
     Dosage: 300MG THREE TIMES PER DAY
     Route: 048
  3. VITAMIN A [Concomitant]
  4. VITAMIN D [Concomitant]
  5. VITAMIN E [Concomitant]
  6. VITAMIN K [Concomitant]

REACTIONS (2)
  - URTICARIA [None]
  - VIRAL INFECTION [None]
